FAERS Safety Report 5381866-8 (Version None)
Quarter: 2007Q3

REPORT INFORMATION
  Report Type: 
  Country: None (occurrence: None)
  Receive Date: 20070705
  Receipt Date: 20070705
  Transmission Date: 20080115
  Serious: Yes (Hospitalization, Other)
  Sender: FDA-Public Use
  Company Number: None

PATIENT
  Age: 44 Year
  Sex: Female
  Weight: 55.3388 kg

DRUGS (1)
  1. CLARITHROMYCIN [Suspect]
     Indication: TOOTH INFECTION
     Dosage: 2 TABLETS 1 TIME PER DAY PO
     Route: 048
     Dates: start: 20070702, end: 20070702

REACTIONS (5)
  - ABDOMINAL PAIN [None]
  - DIZZINESS [None]
  - NAUSEA [None]
  - TONGUE BLACK HAIRY [None]
  - VOMITING [None]
